FAERS Safety Report 25238320 (Version 1)
Quarter: 2025Q2

REPORT INFORMATION
  Report Type: Spontaneous
  Country: US (occurrence: None)
  Receive Date: 20250424
  Receipt Date: 20250424
  Transmission Date: 20250716
  Serious: No
  Sender: FDA-CTU
  Company Number: None

PATIENT
  Age: 39 Year
  Sex: Male
  Weight: 121.11 kg

DRUGS (11)
  1. DUPIXENT [Suspect]
     Active Substance: DUPILUMAB
     Indication: Asthma
     Dosage: FREQUENCY : EVERY OTHER WEEK;?
     Route: 058
     Dates: start: 20240605, end: 20250410
  2. Brezti inhaler [Concomitant]
  3. LEVOCETIRIZINE [Concomitant]
     Active Substance: LEVOCETIRIZINE
  4. ZAFIRLUKAST [Concomitant]
     Active Substance: ZAFIRLUKAST
  5. MONTELUKAST [Concomitant]
     Active Substance: MONTELUKAST
  6. AZELASTINE [Concomitant]
     Active Substance: AZELASTINE
  7. CEFPROZIL [Concomitant]
     Active Substance: CEFPROZIL
  8. XHANCE [Concomitant]
     Active Substance: FLUTICASONE PROPIONATE
  9. MIDODRINE [Concomitant]
     Active Substance: MIDODRINE
  10. METOPROLOL [Concomitant]
     Active Substance: METOPROLOL
  11. Symbicort 160-4.5 [Concomitant]

REACTIONS (1)
  - Arthralgia [None]

NARRATIVE: CASE EVENT DATE: 20250202
